FAERS Safety Report 11193576 (Version 1)
Quarter: 2015Q2

REPORT INFORMATION
  Report Type: Report from Study
  Country: CA (occurrence: CA)
  Receive Date: 20150616
  Receipt Date: 20150616
  Transmission Date: 20150821
  Serious: Yes (Death, Hospitalization)
  Sender: FDA-Public Use
  Company Number: CA-ASTRAZENECA-2015SE22540

PATIENT
  Age: 73 Year
  Sex: Male

DRUGS (2)
  1. ZOLADEX LA [Suspect]
     Active Substance: GOSERELIN ACETATE
     Indication: PROSTATE CANCER
     Route: 058
     Dates: start: 20110105
  2. NARCOTIC DRUG [Suspect]
     Active Substance: UNSPECIFIED INGREDIENT
     Route: 065

REACTIONS (3)
  - Death [Fatal]
  - Pain [Not Recovered/Not Resolved]
  - Sedation [Not Recovered/Not Resolved]

NARRATIVE: CASE EVENT DATE: 20150228
